FAERS Safety Report 4436908-0 (Version None)
Quarter: 2004Q3

REPORT INFORMATION
  Report Type: 
  Country: None (occurrence: None)
  Receive Date: 20040726
  Receipt Date: 20040322
  Transmission Date: 20050211
  Serious: No
  Sender: FDA-Public Use
  Company Number: USA040362744

PATIENT
  Age: 69 Year
  Sex: Male

DRUGS (2)
  1. FORTEO [Suspect]
     Indication: OSTEOPOROSIS
     Dosage: 20 UG DAY
     Dates: start: 20040122
  2. CALCIUM CARBONATE [Concomitant]

REACTIONS (2)
  - INJURY [None]
  - SKIN LACERATION [None]
